FAERS Safety Report 22775689 (Version 9)
Quarter: 2023Q4

REPORT INFORMATION
  Report Type: Report from Study
  Country: US (occurrence: US)
  Receive Date: 20230802
  Receipt Date: 20231009
  Transmission Date: 20240110
  Serious: Yes (Life-Threatening, Hospitalization, Other)
  Sender: FDA-Public Use
  Company Number: US-UCBSA-2023036282

PATIENT
  Sex: Male
  Weight: 53.6 kg

DRUGS (8)
  1. FINTEPLA [Suspect]
     Active Substance: FENFLURAMINE
     Indication: Lennox-Gastaut syndrome
     Dosage: 6 MILLILITER, 2X/DAY (BID)
     Route: 048
     Dates: start: 20230206
  2. FINTEPLA [Suspect]
     Active Substance: FENFLURAMINE
     Dosage: 6 MILLILITER, 2X/DAY (BID)
     Route: 048
     Dates: start: 20230226
  3. FINTEPLA [Suspect]
     Active Substance: FENFLURAMINE
     Dosage: 13 MILLIGRAM, 2X/DAY (BID)
     Route: 048
     Dates: start: 20230222
  4. FINTEPLA [Suspect]
     Active Substance: FENFLURAMINE
     Dosage: 6 MILLILITER, 2X/DAY (BID)
     Route: 048
     Dates: start: 2023
  5. FINTEPLA [Suspect]
     Active Substance: FENFLURAMINE
     Dosage: UNK
     Route: 048
  6. EPIDIOLEX [Concomitant]
     Active Substance: CANNABIDIOL
     Indication: Lennox-Gastaut syndrome
     Dosage: 600 MILLIGRAM, 2X/DAY (BID)
     Dates: start: 20210524
  7. FYCOMPA [Concomitant]
     Active Substance: PERAMPANEL
     Indication: Lennox-Gastaut syndrome
     Dosage: 12 MILLIGRAM, QHS
     Dates: start: 20210426
  8. CANNABIDIOL [Concomitant]
     Active Substance: CANNABIDIOL
     Indication: Product used for unknown indication
     Dosage: 600 MILLIGRAM, 2X/DAY (BID)
     Dates: start: 20210524

REACTIONS (13)
  - Oesophageal rupture [Recovering/Resolving]
  - Pneumonia fungal [Not Recovered/Not Resolved]
  - Pneumothorax [Not Recovered/Not Resolved]
  - Gastrointestinal disorder [Not Recovered/Not Resolved]
  - Aortic valve incompetence [Not Recovered/Not Resolved]
  - Seizure [Unknown]
  - Tricuspid valve incompetence [Recovered/Resolved]
  - Pericardial effusion [Recovered/Resolved]
  - Weight decreased [Recovering/Resolving]
  - Pulmonary arterial pressure increased [Recovering/Resolving]
  - Dilatation ventricular [Recovered/Resolved]
  - Adverse event [Unknown]
  - Left ventricular dysfunction [Unknown]

NARRATIVE: CASE EVENT DATE: 20230101
